FAERS Safety Report 15283908 (Version 1)
Quarter: 2018Q3

REPORT INFORMATION
  Report Type: Report from Study
  Country: GB (occurrence: GB)
  Receive Date: 20180816
  Receipt Date: 20180816
  Transmission Date: 20181010
  Serious: Yes (Other)
  Sender: FDA-Public Use
  Company Number: PHHY2018GB070404

PATIENT
  Age: 75 Year
  Sex: Male
  Weight: 67 kg

DRUGS (1)
  1. ENTRESTO [Suspect]
     Active Substance: SACUBITRIL\VALSARTAN
     Indication: CARDIAC FAILURE
     Dosage: 50 MG, BID
     Route: 048
     Dates: start: 20180615

REACTIONS (3)
  - Fall [Unknown]
  - Vision blurred [Unknown]
  - Ankle fracture [Unknown]

NARRATIVE: CASE EVENT DATE: 20180615
